FAERS Safety Report 4988325-2 (Version None)
Quarter: 2006Q2

REPORT INFORMATION
  Report Type: 
  Country: None (occurrence: None)
  Receive Date: 20060425
  Receipt Date: 20060407
  Transmission Date: 20061013
  Serious: Yes (Congenital Anomaly)
  Sender: FDA-Public Use
  Company Number: S06-SWI-01554-01

PATIENT
  Age: 38 Year
  Sex: Female

DRUGS (1)
  1. CITALOPRAM HYDROBROMIDE [Suspect]
     Indication: DEPRESSION
     Dosage: 20 MG QD PO
     Route: 048

REACTIONS (3)
  - CONGENITAL ANOMALY [None]
  - CONGENITAL AORTIC ATRESIA [None]
  - DRUG EXPOSURE DURING PREGNANCY [None]
